FAERS Safety Report 5646005-4 (Version None)
Quarter: 2008Q1

REPORT INFORMATION
  Report Type: 
  Country: None (occurrence: None)
  Receive Date: 20080229
  Receipt Date: 20080219
  Transmission Date: 20080703
  Serious: Yes (Hospitalization, Other)
  Sender: FDA-Public Use
  Company Number: FR-PFIZER INC-2008016081

PATIENT
  Age: 53 Year
  Sex: Female

DRUGS (1)
  1. RELPAX [Suspect]

REACTIONS (2)
  - DRUG ABUSE [None]
  - DRUG WITHDRAWAL SYNDROME [None]
